FAERS Safety Report 12410285 (Version 1)
Quarter: 2016Q2

REPORT INFORMATION
  Report Type: Spontaneous
  Country: US (occurrence: None)
  Receive Date: 20160526
  Receipt Date: 20160526
  Transmission Date: 20160815
  Serious: Yes (Life-Threatening, Disabling, Other)
  Sender: FDA-Public Use
  Company Number: None

PATIENT
  Sex: Female
  Weight: 72.58 kg

DRUGS (12)
  1. GABAPENTINE [Concomitant]
     Active Substance: GABAPENTIN
  2. FLEXERYL [Concomitant]
  3. ONE-A-DAY NOS [Concomitant]
     Active Substance: MINERALS\VITAMINS
  4. OXYCODONE [Concomitant]
     Active Substance: OXYCODONE
  5. AVOSTATIN [Concomitant]
  6. IRON [Concomitant]
     Active Substance: IRON
  7. CYMBALTA [Concomitant]
     Active Substance: DULOXETINE HYDROCHLORIDE
  8. LYRICA [Concomitant]
     Active Substance: PREGABALIN
  9. ESTRADIOL. [Concomitant]
     Active Substance: ESTRADIOL
  10. MIRTAZAPINE. [Suspect]
     Active Substance: MIRTAZAPINE
     Indication: DEPRESSION
     Dosage: 30 TABLETS(S) AT BEDTIME TAKEN BY MOUTH
     Route: 048
     Dates: start: 20151211, end: 20160105
  11. VOLTAREN [Concomitant]
     Active Substance: DICLOFENAC SODIUM
  12. TRAZODONE [Concomitant]
     Active Substance: TRAZODONE HYDROCHLORIDE

REACTIONS (26)
  - Hypersensitivity [None]
  - Joint stiffness [None]
  - Dysstasia [None]
  - Arthralgia [None]
  - Muscle spasms [None]
  - Wrong technique in product usage process [None]
  - Loss of employment [None]
  - Mobility decreased [None]
  - Peripheral swelling [None]
  - Bone pain [None]
  - Economic problem [None]
  - Night sweats [None]
  - Skin tightness [None]
  - Pain [None]
  - Quality of life decreased [None]
  - Joint swelling [None]
  - Local swelling [None]
  - Gait disturbance [None]
  - Groin pain [None]
  - Abasia [None]
  - Pruritus [None]
  - Depression [None]
  - Musculoskeletal pain [None]
  - Activities of daily living impaired [None]
  - Pain in extremity [None]
  - Middle insomnia [None]
